FAERS Safety Report 23237822 (Version 1)
Quarter: 2023Q4

REPORT INFORMATION
  Report Type: Spontaneous
  Country: IT (occurrence: IT)
  Receive Date: 20231128
  Receipt Date: 20231128
  Transmission Date: 20240110
  Serious: Yes (Hospitalization, Other)
  Sender: FDA-Public Use
  Company Number: IT-MLMSERVICE-20231109-4651622-1

PATIENT
  Age: 68 Year
  Sex: Female

DRUGS (2)
  1. MYCOPHENOLATE MOFETIL [Suspect]
     Active Substance: MYCOPHENOLATE MOFETIL
     Indication: Immunosuppressant drug therapy
  2. TACROLIMUS [Concomitant]
     Active Substance: TACROLIMUS
     Indication: Immunosuppressant drug therapy

REACTIONS (7)
  - Hypogammaglobulinaemia [Recovering/Resolving]
  - Respiratory failure [Recovering/Resolving]
  - Stenotrophomonas infection [Recovering/Resolving]
  - Respiratory tract infection [Recovering/Resolving]
  - Bronchiectasis [Recovering/Resolving]
  - Pseudomonas infection [Recovering/Resolving]
  - Aspergillus infection [Recovering/Resolving]
